FAERS Safety Report 15331249 (Version 1)
Quarter: 2018Q3

REPORT INFORMATION
  Report Type: Spontaneous
  Country: FR (occurrence: FR)
  Receive Date: 20180829
  Receipt Date: 20180829
  Transmission Date: 20181010
  Serious: Yes (Other)
  Sender: FDA-Public Use
  Company Number: PHHY2018FR078130

PATIENT
  Age: 70 Year
  Sex: Male

DRUGS (6)
  1. PREDNISONE. [Suspect]
     Active Substance: PREDNISONE
     Indication: SERONEGATIVE ARTHRITIS
     Dosage: UNK, LOW?DOSE
     Route: 048
  2. METHYLPREDNISOLONE. [Suspect]
     Active Substance: METHYLPREDNISOLONE
     Dosage: DAILY DOSE { 20MG
     Route: 065
  3. METHYLPREDNISOLONE. [Suspect]
     Active Substance: METHYLPREDNISOLONE
     Indication: SERONEGATIVE ARTHRITIS
     Dosage: 1 G, SINGLE BOLUS
     Route: 065
  4. PREDNISONE. [Suspect]
     Active Substance: PREDNISONE
     Dosage: 1 MG/KG, QD
     Route: 048
  5. METHYLPREDNISOLONE. [Suspect]
     Active Substance: METHYLPREDNISOLONE
     Dosage: 1 MG/KG, QD
     Route: 065
  6. PREDNISONE. [Suspect]
     Active Substance: PREDNISONE
     Dosage: DAILY DOSE { 20MG
     Route: 048

REACTIONS (4)
  - Polyarthritis [Unknown]
  - Drug dependence [Unknown]
  - Arthralgia [Unknown]
  - Product use in unapproved indication [Unknown]
